FAERS Safety Report 5375252-4 (Version None)
Quarter: 2007Q2

REPORT INFORMATION
  Report Type: 
  Country: None (occurrence: None)
  Receive Date: 20070629
  Receipt Date: 20070105
  Transmission Date: 20071010
  Serious: Yes (Other)
  Sender: FDA-Public Use
  Company Number: US-ASTRAZENECA-2007UW00322

PATIENT
  Sex: Female

DRUGS (4)
  1. TAMOXIFEN CITRATE [Suspect]
     Route: 048
  2. ARIMIDEX [Concomitant]
     Route: 048
     Dates: start: 20020101, end: 20030101
  3. XELODA [Concomitant]
  4. FEMARA [Concomitant]

REACTIONS (2)
  - DISEASE PROGRESSION [None]
  - HOT FLUSH [None]
